FAERS Safety Report 12345898 (Version 1)
Quarter: 2016Q2

REPORT INFORMATION
  Report Type: Spontaneous
  Country: US (occurrence: US)
  Receive Date: 20160509
  Receipt Date: 20160509
  Transmission Date: 20160815
  Serious: No
  Sender: FDA-Public Use
  Company Number: US-009507513-1604USA017406

PATIENT
  Age: 91 Year
  Sex: Female

DRUGS (2)
  1. SINEMET [Suspect]
     Active Substance: CARBIDOPA\LEVODOPA
     Indication: PARKINSON^S DISEASE
     Dosage: 1 DF, QD
     Route: 048
     Dates: start: 20160126, end: 20160426
  2. COZAAR [Concomitant]
     Active Substance: LOSARTAN POTASSIUM

REACTIONS (6)
  - Nightmare [Recovering/Resolving]
  - Productive cough [Recovering/Resolving]
  - Dysphonia [Recovering/Resolving]
  - Arthralgia [Recovering/Resolving]
  - Myalgia [Recovering/Resolving]
  - Gait disturbance [Recovering/Resolving]

NARRATIVE: CASE EVENT DATE: 201603
